FAERS Safety Report 15265155 (Version 1)
Quarter: 2018Q3

REPORT INFORMATION
  Report Type: Report from Study
  Country: BR (occurrence: BR)
  Receive Date: 20180810
  Receipt Date: 20180810
  Transmission Date: 20181010
  Serious: Yes (Hospitalization)
  Sender: FDA-Public Use
  Company Number: BR-ACTELION-A-CH2018-177217

PATIENT
  Age: 20 Year
  Sex: Male

DRUGS (1)
  1. ZAVESCA [Suspect]
     Active Substance: MIGLUSTAT
     Indication: TAY-SACHS DISEASE
     Dosage: 100 MG, TID
     Route: 048
     Dates: start: 2013, end: 201712

REACTIONS (8)
  - Fall [Unknown]
  - Product supply issue [Unknown]
  - Dysarthria [Unknown]
  - Balance disorder [Unknown]
  - Aspiration bronchial [Unknown]
  - Gait disturbance [Unknown]
  - Condition aggravated [Unknown]
  - Incorrect dose administered [Unknown]

NARRATIVE: CASE EVENT DATE: 201712
